FAERS Safety Report 21033847 (Version 1)
Quarter: 2022Q3

REPORT INFORMATION
  Report Type: Spontaneous
  Country: US (occurrence: US)
  Receive Date: 20220701
  Receipt Date: 20220701
  Transmission Date: 20221026
  Serious: No
  Sender: FDA-Public Use
  Company Number: US-BRISTOL-MYERS SQUIBB COMPANY-2022-066406

PATIENT
  Age: 64 Year
  Sex: Female

DRUGS (1)
  1. REVLIMID [Suspect]
     Active Substance: LENALIDOMIDE
     Indication: Blood disorder
     Dosage: FREQ: EVERY DAY FOR 21 DAYS OF A 28 DAY CYCLE REPEAT AS DIRECTED
     Route: 048
     Dates: start: 20220613

REACTIONS (2)
  - Migraine with aura [Recovered/Resolved]
  - Nausea [Recovered/Resolved]
